FAERS Safety Report 7742677-9 (Version None)
Quarter: 2011Q3

REPORT INFORMATION
  Report Type: 
  Country: None (occurrence: None)
  Receive Date: 20110912
  Receipt Date: 20110901
  Transmission Date: 20111222
  Serious: Yes (Hospitalization, Other)
  Sender: FDA-Public Use
  Company Number: AU-JNJFOC-20110809002

PATIENT
  Sex: Female

DRUGS (4)
  1. REMICADE [Suspect]
     Indication: CROHN'S DISEASE
     Route: 042
     Dates: start: 20110216
  2. REMICADE [Suspect]
     Route: 042
     Dates: start: 20110109
  3. REMICADE [Suspect]
     Route: 042
     Dates: start: 20101216
  4. REMICADE [Suspect]
     Route: 042
     Dates: start: 20110505

REACTIONS (2)
  - PLEURAL EFFUSION [None]
  - LUPUS-LIKE SYNDROME [None]
